FAERS Safety Report 5286127-3 (Version None)
Quarter: 2007Q2

REPORT INFORMATION
  Report Type: 
  Country: None (occurrence: None)
  Receive Date: 20070404
  Receipt Date: 20070327
  Transmission Date: 20071010
  Serious: Yes (Hospitalization)
  Sender: FDA-Public Use
  Company Number: FR-AVENTIS-200711127FR

PATIENT
  Age: 70 Year
  Sex: Male

DRUGS (4)
  1. TAXOTERE [Suspect]
     Route: 042
     Dates: start: 20070220, end: 20070220
  2. CISPLATIN [Suspect]
     Route: 042
     Dates: start: 20070220, end: 20070220
  3. FLUOROURACIL [Suspect]
     Route: 042
     Dates: start: 20070220, end: 20070224
  4. COTAREG [Concomitant]

REACTIONS (2)
  - HYPOTENSION [None]
  - RENAL FAILURE [None]
